FAERS Safety Report 12290575 (Version 2)
Quarter: 2016Q2

REPORT INFORMATION
  Report Type: Report from Study
  Country: FR (occurrence: FR)
  Receive Date: 20160421
  Receipt Date: 20160502
  Transmission Date: 20160815
  Serious: Yes (Other)
  Sender: FDA-Public Use
  Company Number: FR-PFIZER INC-2016216293

PATIENT
  Age: 24 Year
  Sex: Female
  Weight: 55 kg

DRUGS (2)
  1. MIFEGYNE [Suspect]
     Active Substance: MIFEPRISTONE
     Indication: ABORTION INDUCED
     Dosage: 600 MG, UNK (TOTAL)
     Route: 048
     Dates: start: 20130903, end: 20130903
  2. CYTOTEC [Suspect]
     Active Substance: MISOPROSTOL
     Indication: ABORTION INDUCED
     Dosage: 800 UG, UNK (TOTAL)
     Route: 060
     Dates: start: 20130905, end: 20130905

REACTIONS (3)
  - Incorrect dose administered [Unknown]
  - Abortion induced incomplete [Unknown]
  - Post abortion infection [Unknown]

NARRATIVE: CASE EVENT DATE: 20130905
